FAERS Safety Report 10445675 (Version 2)
Quarter: 2015Q1

REPORT INFORMATION
  Report Type: Spontaneous
  Country: US (occurrence: US)
  Receive Date: 20140908
  Receipt Date: 20150224
  Transmission Date: 20150720
  Serious: Yes (Hospitalization, Other)
  Sender: FDA-Public Use
  Company Number: US-PFIZER INC-2014249032

PATIENT
  Age: 93 Year
  Sex: Female
  Weight: 80.73 kg

DRUGS (1)
  1. LYRICA [Suspect]
     Active Substance: PREGABALIN
     Indication: NEUROPATHY PERIPHERAL
     Dosage: [1 CAPSULE OF 50MG IN MORNING, 2 CAPSULES OF 50MG IN NOON AND 3 CAPSULES OF 50MG IN NIGHT], 3X/DAY

REACTIONS (1)
  - Cardiac failure congestive [Unknown]
